FAERS Safety Report 21089693 (Version 1)
Quarter: 2022Q3

REPORT INFORMATION
  Report Type: Report from Study
  Country: US (occurrence: None)
  Receive Date: 20220715
  Receipt Date: 20220715
  Transmission Date: 20221027
  Serious: Yes (Death)
  Sender: FDA-Public Use
  Company Number: 2022A257227

PATIENT
  Age: 12748 Day
  Sex: Female

DRUGS (3)
  1. LYNPARZA [Suspect]
     Active Substance: OLAPARIB
     Indication: Breast cancer female
     Route: 048
     Dates: start: 20201209
  2. LYNPARZA [Suspect]
     Active Substance: OLAPARIB
     Indication: Death
     Route: 048
     Dates: start: 20201209
  3. LYNPARZA [Suspect]
     Active Substance: OLAPARIB
     Indication: Lung carcinoma cell type unspecified stage 0
     Route: 048
     Dates: start: 20201209

REACTIONS (1)
  - Death [Fatal]

NARRATIVE: CASE EVENT DATE: 20220330
